FAERS Safety Report 5801699-5 (Version None)
Quarter: 2008Q3

REPORT INFORMATION
  Report Type: 
  Country: None (occurrence: None)
  Receive Date: 20080707
  Receipt Date: 20080627
  Transmission Date: 20090109
  Serious: Yes (Other)
  Sender: FDA-Public Use
  Company Number: B0527047A

PATIENT
  Age: 69 Year
  Sex: Female

DRUGS (1)
  1. CEFUROXIME [Suspect]
     Indication: DRUG USE FOR UNKNOWN INDICATION
     Route: 048
     Dates: start: 20080624, end: 20080624

REACTIONS (4)
  - ERYTHEMA [None]
  - GLOSSITIS [None]
  - HYPERSENSITIVITY [None]
  - URTICARIA [None]
